FAERS Safety Report 19792335 (Version 1)
Quarter: 2021Q3

REPORT INFORMATION
  Report Type: Spontaneous
  Country: KW (occurrence: KW)
  Receive Date: 20210906
  Receipt Date: 20210906
  Transmission Date: 20211014
  Serious: Yes (Hospitalization)
  Sender: FDA-Public Use
  Company Number: KW-GLAXOSMITHKLINE-KW2021EME184420

PATIENT
  Sex: Female

DRUGS (1)
  1. SOTROVIMAB FOR COVID?19 BY INTERIM ORDER/EMERGENCY USE AUTHORIZATION [Suspect]
     Active Substance: SOTROVIMAB
     Indication: COVID-19
     Dosage: 500 MG, Z SINGLE
     Route: 042

REACTIONS (2)
  - COVID-19 [Unknown]
  - General physical health deterioration [Unknown]
